FAERS Safety Report 6774232-1 (Version None)
Quarter: 2010Q2

REPORT INFORMATION
  Report Type: 
  Country: None (occurrence: None)
  Receive Date: 20100617
  Receipt Date: 20100608
  Transmission Date: 20101027
  Serious: Yes (Death)
  Sender: FDA-Public Use
  Company Number: TR-PFIZER INC-2010071882

PATIENT
  Age: 53 Year
  Sex: Male

DRUGS (1)
  1. SULPERAZON [Suspect]
     Dosage: UNK

REACTIONS (2)
  - DISEASE PROGRESSION [None]
  - NERVOUS SYSTEM DISORDER [None]
